FAERS Safety Report 7979871-8 (Version None)
Quarter: 2011Q4

REPORT INFORMATION
  Report Type: 
  Country: None (occurrence: None)
  Receive Date: 20111214
  Receipt Date: 20111202
  Transmission Date: 20120403
  Serious: Yes (Death, Hospitalization)
  Sender: FDA-Public Use
  Company Number: AU-BRISTOL-MYERS SQUIBB COMPANY-14952279

PATIENT
  Age: 65 Year
  Sex: Female
  Weight: 63 kg

DRUGS (7)
  1. MAXOLON [Concomitant]
     Indication: NAUSEA
     Dates: start: 20091228
  2. CETUXIMAB [Suspect]
     Indication: COLORECTAL CANCER METASTATIC
     Dosage: 440 MG 22DEC2009-19JAN2010
     Route: 042
     Dates: start: 20091215, end: 20100119
  3. OXYCONTIN [Concomitant]
     Indication: BACK PAIN
     Dates: start: 20091001
  4. OXYCODONE HCL [Concomitant]
     Indication: BACK PAIN
     Dates: start: 20091001
  5. BRIVANIB ALANINATE [Suspect]
     Indication: COLORECTAL CANCER METASTATIC
     Dosage: INTERRUPTED ON 22-JAN-2010
     Route: 048
     Dates: start: 20091215, end: 20100122
  6. DIFFLAM [Concomitant]
     Dates: start: 20091222
  7. MOVIPREP [Concomitant]
     Indication: CONSTIPATION
     Dates: start: 20091205

REACTIONS (7)
  - CEREBRAL ISCHAEMIA [None]
  - GRAND MAL CONVULSION [None]
  - FATIGUE [None]
  - URINARY TRACT INFECTION [None]
  - CONFUSIONAL STATE [None]
  - NEOPLASM MALIGNANT [None]
  - DEHYDRATION [None]
